FAERS Safety Report 5167353-0 (Version None)
Quarter: 2006Q4

REPORT INFORMATION
  Report Type: 
  Country: None (occurrence: None)
  Receive Date: 20061207
  Receipt Date: 19960426
  Transmission Date: 20070319
  Serious: No
  Sender: FDA-Public Use
  Company Number: FR-ABBOTT-96P-056-0047869-00

PATIENT
  Sex: Male
  Weight: 75 kg

DRUGS (6)
  1. NORVIR [Suspect]
     Indication: HIV INFECTION
     Route: 048
     Dates: start: 19960321, end: 19960715
  2. BACTRIM [Concomitant]
     Indication: DRUG USE FOR UNKNOWN INDICATION
     Route: 048
     Dates: start: 19920101
  3. D4T [Concomitant]
     Indication: DRUG USE FOR UNKNOWN INDICATION
     Route: 048
     Dates: start: 19960405
  4. LAMIVUDINE [Concomitant]
     Indication: DRUG USE FOR UNKNOWN INDICATION
     Route: 048
     Dates: start: 19960405
  5. AZT [Concomitant]
     Indication: DRUG USE FOR UNKNOWN INDICATION
     Dates: start: 19901101
  6. AMOXICILLIN [Concomitant]
     Indication: DRUG USE FOR UNKNOWN INDICATION
     Dates: start: 19960226

REACTIONS (5)
  - ALANINE AMINOTRANSFERASE INCREASED [None]
  - ASPARTATE AMINOTRANSFERASE INCREASED [None]
  - HAEMARTHROSIS [None]
  - HAEMATOMA [None]
  - MYALGIA [None]
